FAERS Safety Report 6156270-5 (Version None)
Quarter: 2009Q2

REPORT INFORMATION
  Report Type: 
  Country: None (occurrence: None)
  Receive Date: 20090413
  Receipt Date: 20090413
  Transmission Date: 20091009
  Serious: Yes (Life-Threatening, Hospitalization)
  Sender: FDA-Public Use
  Company Number: None

PATIENT
  Age: 56 Year
  Sex: Female
  Weight: 88.4514 kg

DRUGS (1)
  1. TAXOTERE [Suspect]
     Indication: BREAST CANCER
     Dates: start: 20090402, end: 20090402

REACTIONS (11)
  - AMNESIA [None]
  - ASPHYXIA [None]
  - CONVULSION [None]
  - DECREASED APPETITE [None]
  - DYSPNOEA [None]
  - EYE ROLLING [None]
  - FLUSHING [None]
  - LOSS OF CONSCIOUSNESS [None]
  - TONGUE BITING [None]
  - TREMOR [None]
  - URINARY INCONTINENCE [None]
